FAERS Safety Report 21509147 (Version 1)
Quarter: 2022Q4

REPORT INFORMATION
  Report Type: Spontaneous
  Country: US (occurrence: US)
  Receive Date: 20221026
  Receipt Date: 20221026
  Transmission Date: 20230113
  Serious: Yes (Hospitalization)
  Sender: FDA-Public Use
  Company Number: US-NOVARTISPH-NVSC2022US238646

PATIENT
  Age: 17 Year

DRUGS (1)
  1. IBUPROFEN [Suspect]
     Active Substance: IBUPROFEN
     Indication: Product used for unknown indication
     Dosage: APPROXIMATELY 40 G
     Route: 065

REACTIONS (5)
  - Intentional overdose [Unknown]
  - Nausea [Unknown]
  - Vomiting [Unknown]
  - Shock [Unknown]
  - Metabolic acidosis [Recovering/Resolving]
